FAERS Safety Report 10496024 (Version 3)
Quarter: 2014Q4

REPORT INFORMATION
  Report Type: Spontaneous
  Country: GB (occurrence: GB)
  Receive Date: 20141003
  Receipt Date: 20141006
  Transmission Date: 20150528
  Serious: Yes (Other)
  Sender: FDA-Public Use
  Company Number: GB-BAYER-2014-138384

PATIENT
  Age: 34 Year
  Sex: Male

DRUGS (5)
  1. KEPPRA [Concomitant]
     Active Substance: LEVETIRACETAM
     Indication: EPILEPSY
  2. CANESTEN ORAL CAPSULE [Suspect]
     Active Substance: FLUCONAZOLE
     Indication: PENILE INFECTION
     Dosage: UNK
     Route: 048
     Dates: start: 201409
  3. CARBAMAZEPINE. [Concomitant]
     Active Substance: CARBAMAZEPINE
     Indication: EPILEPSY
  4. LACOSAMIDE [Concomitant]
     Active Substance: LACOSAMIDE
     Indication: EPILEPSY
  5. CANESTEN CREME [Suspect]
     Active Substance: CLOTRIMAZOLE
     Indication: PENILE INFECTION
     Dosage: UNK
     Dates: start: 201409

REACTIONS (4)
  - Penile erythema [Recovering/Resolving]
  - Phimosis [Recovered/Resolved]
  - Genital discomfort [Recovering/Resolving]
  - Penile burning sensation [Recovering/Resolving]

NARRATIVE: CASE EVENT DATE: 201409
